FAERS Safety Report 4805574-4 (Version None)
Quarter: 2005Q4

REPORT INFORMATION
  Report Type: 
  Country: None (occurrence: None)
  Receive Date: 20051018
  Receipt Date: 20051010
  Transmission Date: 20060501
  Serious: Yes (Other)
  Sender: FDA-Public Use
  Company Number: 163-20785-05100137

PATIENT
  Sex: 0

DRUGS (2)
  1. THALOMID [Suspect]
     Indication: HEPATIC NEOPLASM MALIGNANT
     Dosage: 200 MG INITIAL DOSE, ESCALATED  BY 100 MG Q2WK TO MAXIMUM OF 800 MG, AS TOLERATED, QD, ORAL
     Route: 048
  2. EPIRUBICIN (EPIRUBICIN) (INJECTION FOR INFUSION) [Suspect]
     Indication: HEPATIC NEOPLASM MALIGNANT
     Dosage: 20MG/M2 EVERY WEEK FOR 3 WEEKS, FOLLOWED BY 1 WEEK REST, INTRAVENOUS
     Route: 042

REACTIONS (1)
  - RESPIRATORY FAILURE [None]
